FAERS Safety Report 4394574-7 (Version None)
Quarter: 2004Q3

REPORT INFORMATION
  Report Type: 
  Country: None (occurrence: None)
  Receive Date: 20040712
  Receipt Date: 20040513
  Transmission Date: 20050211
  Serious: Yes (Other)
  Sender: FDA-Public Use
  Company Number: NZ-ROCHE-367467

PATIENT
  Age: 62 Year
  Sex: Female
  Weight: 68.5 kg

DRUGS (2)
  1. PEGASYS [Suspect]
     Indication: HEPATITIS C
     Route: 058
  2. COPEGUS [Suspect]
     Indication: HEPATITIS C
     Route: 048

REACTIONS (3)
  - HAEMOGLOBIN ABNORMAL [None]
  - PLATELET COUNT DECREASED [None]
  - VAGINAL HAEMORRHAGE [None]
